FAERS Safety Report 5789018-4 (Version None)
Quarter: 2008Q2

REPORT INFORMATION
  Report Type: 
  Country: None (occurrence: None)
  Receive Date: 20080626
  Receipt Date: 20080620
  Transmission Date: 20081010
  Serious: Yes (Hospitalization)
  Sender: FDA-Public Use
  Company Number: A0734143A

PATIENT
  Sex: Male

DRUGS (3)
  1. ADVAIR DISKUS 100/50 [Suspect]
     Indication: ASTHMA
     Dosage: 2PUFF TWICE PER DAY
     Route: 055
     Dates: start: 20070101
  2. DUONEB [Concomitant]
  3. ALBUTEROL [Concomitant]

REACTIONS (5)
  - ASTHMA [None]
  - EXPIRED DRUG ADMINISTERED [None]
  - INFLUENZA [None]
  - PNEUMONIA VIRAL [None]
  - RESPIRATORY SYNCYTIAL VIRUS INFECTION [None]
